FAERS Safety Report 8360222-4 (Version None)
Quarter: 2012Q1

REPORT INFORMATION
  Report Type: 
  Country: None (occurrence: None)
  Receive Date: 20120323
  Receipt Date: 20111012
  Transmission Date: 20120608
  Serious: Yes (Other)
  Sender: FDA-Public Use
  Company Number: 163-21880-11101486

PATIENT
  Age: 82 Year
  Sex: Female

DRUGS (1)
  1. REVLIMID [Suspect]
     Indication: MULTIPLE MYELOMA
     Dosage: 10 MG, DAUKT X 3 WEEKS ON, 1 WEEK OFF, PO
     Route: 048
     Dates: start: 20110929

REACTIONS (11)
  - HYPOAESTHESIA [None]
  - PRURITUS [None]
  - OXYGEN SATURATION [None]
  - PARAESTHESIA [None]
  - CONSTIPATION [None]
  - EPISTAXIS [None]
  - BACK PAIN [None]
  - OXYGEN SATURATION DECREASED [None]
  - FULL BLOOD COUNT DECREASED [None]
  - INSOMNIA [None]
  - DIARRHOEA [None]
